FAERS Safety Report 26071857 (Version 1)
Quarter: 2025Q4

REPORT INFORMATION
  Report Type: Spontaneous
  Country: CA (occurrence: CA)
  Receive Date: 20251120
  Receipt Date: 20251120
  Transmission Date: 20260117
  Serious: Yes (Death, Hospitalization, Other)
  Sender: MYLAN
  Company Number: CA-MYLANLABS-2025M1098110

PATIENT
  Age: 86 Year
  Sex: Female

DRUGS (9)
  1. PREGABALIN [Suspect]
     Active Substance: PREGABALIN
     Indication: Product used for unknown indication
     Dosage: 2 DOSAGE FORM, QD (1 EVERY 1 DAYS)
  2. PREGABALIN [Suspect]
     Active Substance: PREGABALIN
     Indication: Product used for unknown indication
     Dosage: 1 DOSAGE FORM, BID (1 EVERY 12 HOUR)
  3. MEPOLIZUMAB [Suspect]
     Active Substance: MEPOLIZUMAB
     Indication: Asthma
     Dosage: 100 MILLIGRAM (1 EVERY 4 WEEKS)
  4. MEPOLIZUMAB [Suspect]
     Active Substance: MEPOLIZUMAB
     Indication: Asthma
     Dosage: 100 MILLIGRAM (1 EVERY 4 WEEKS)
  5. COVID-19 vaccine [Concomitant]
     Indication: Product used for unknown indication
     Dosage: UNK
  6. INFLUENZA VIRUS VACCINE [Concomitant]
     Active Substance: INFLUENZA VIRUS VACCINE
     Indication: Product used for unknown indication
     Dosage: UNK
  7. VENTOLIN [Concomitant]
     Active Substance: ALBUTEROL SULFATE
     Indication: Product used for unknown indication
     Dosage: 2 DOSAGE FORM
  8. VENTOLIN [Concomitant]
     Active Substance: ALBUTEROL SULFATE
     Dosage: 4 DOSAGE FORM
  9. ZENHALE [Concomitant]
     Active Substance: FORMOTEROL FUMARATE\MOMETASONE FUROATE
     Indication: Product used for unknown indication
     Dosage: 2 DOSAGE FORM (AEROSOL)

REACTIONS (34)
  - Death [Fatal]
  - Arthropathy [Fatal]
  - Asthenia [Fatal]
  - Asthma [Fatal]
  - Blood pressure increased [Fatal]
  - Blood pressure systolic increased [Fatal]
  - Confusional state [Fatal]
  - Contusion [Fatal]
  - Cough [Fatal]
  - Dyspnoea [Fatal]
  - Fall [Fatal]
  - Feeling hot [Fatal]
  - Gait inability [Fatal]
  - General physical health deterioration [Fatal]
  - Head injury [Fatal]
  - Insomnia [Fatal]
  - Joint injury [Fatal]
  - Limb injury [Fatal]
  - Loss of consciousness [Fatal]
  - Lung disorder [Fatal]
  - Muscle spasms [Fatal]
  - Nocturia [Fatal]
  - Pallor [Fatal]
  - Productive cough [Fatal]
  - Pulmonary oedema [Fatal]
  - Respiratory rate increased [Fatal]
  - Scratch [Fatal]
  - Skin lesion [Fatal]
  - Sleep disorder [Fatal]
  - Speech disorder [Fatal]
  - Vital functions abnormal [Fatal]
  - Wheezing [Fatal]
  - Wound haemorrhage [Fatal]
  - Inappropriate schedule of product administration [Fatal]
